FAERS Safety Report 19151958 (Version 5)
Quarter: 2022Q2

REPORT INFORMATION
  Report Type: Spontaneous
  Country: AR (occurrence: AR)
  Receive Date: 20210419
  Receipt Date: 20220608
  Transmission Date: 20220721
  Serious: Yes (Other)
  Sender: FDA-Public Use
  Company Number: AR-PFIZER INC-2021385758

PATIENT
  Age: 60 Year
  Sex: Female

DRUGS (3)
  1. ENBREL [Suspect]
     Active Substance: ETANERCEPT
     Indication: Rheumatoid arthritis
     Dosage: 50 MG, WEEKLY
     Route: 065
     Dates: start: 20100804
  2. ENBREL [Suspect]
     Active Substance: ETANERCEPT
     Dosage: 50 MG, MONTHLY
     Route: 065
  3. ENBREL [Suspect]
     Active Substance: ETANERCEPT
     Dosage: 50 MG, MONTHLY
     Route: 065

REACTIONS (7)
  - Intracranial aneurysm [Not Recovered/Not Resolved]
  - Off label use [Unknown]
  - Bronchial disorder [Not Recovered/Not Resolved]
  - Productive cough [Not Recovered/Not Resolved]
  - Clumsiness [Not Recovered/Not Resolved]
  - Memory impairment [Not Recovered/Not Resolved]
  - Coordination abnormal [Not Recovered/Not Resolved]

NARRATIVE: CASE EVENT DATE: 20210408
